FAERS Safety Report 12001514 (Version 2)
Quarter: 2016Q3

REPORT INFORMATION
  Report Type: Spontaneous
  Country: US (occurrence: US)
  Receive Date: 20160204
  Receipt Date: 20160804
  Transmission Date: 20161109
  Serious: Yes (Hospitalization, Other)
  Sender: FDA-Public Use
  Company Number: US-PFIZER INC-2016063074

PATIENT
  Age: 65 Year
  Sex: Male

DRUGS (3)
  1. ANDROGEL [Suspect]
     Active Substance: TESTOSTERONE
     Dosage: UNK, DAILY
  2. ANDROGEL [Suspect]
     Active Substance: TESTOSTERONE
     Indication: HORMONE REPLACEMENT THERAPY
     Dosage: UNK
     Dates: start: 2013, end: 2014
  3. DEPO-TESTOSTERONE [Suspect]
     Active Substance: TESTOSTERONE CYPIONATE
     Indication: HORMONE REPLACEMENT THERAPY
     Dosage: UNK
     Dates: start: 2013, end: 2014

REACTIONS (3)
  - Pulmonary thrombosis [Unknown]
  - Arrhythmia [Unknown]
  - Pulmonary embolism [Unknown]

NARRATIVE: CASE EVENT DATE: 2014
